FAERS Safety Report 4520264-3 (Version None)
Quarter: 2004Q4

REPORT INFORMATION
  Report Type: 
  Country: None (occurrence: None)
  Receive Date: 20041025
  Receipt Date: 20040909
  Transmission Date: 20050328
  Serious: Yes (Hospitalization)
  Sender: FDA-Public Use
  Company Number: USA040876193

PATIENT
  Age: 19 Year
  Sex: Male

DRUGS (4)
  1. SYMBYAX [Suspect]
     Indication: BIPOLAR I DISORDER
     Dates: start: 20040801
  2. KLONOPIN [Concomitant]
  3. XANAX (ALPRAZOLAM DUM) [Concomitant]
  4. TRAZODONE HCL [Concomitant]

REACTIONS (1)
  - DIABETIC COMA [None]
